FAERS Safety Report 10199739 (Version 1)
Quarter: 2014Q2

REPORT INFORMATION
  Report Type: Spontaneous
  Country: ES (occurrence: ES)
  Receive Date: 20140527
  Receipt Date: 20140527
  Transmission Date: 20141212
  Serious: Yes (Hospitalization, Disabling)
  Sender: FDA-Public Use
  Company Number: ES-MYLANLABS-2014S1011656

PATIENT
  Age: 75 Year
  Sex: Female

DRUGS (1)
  1. MORPHINE [Suspect]
     Indication: BACK PAIN
     Route: 050

REACTIONS (2)
  - Granuloma [Recovering/Resolving]
  - Spinal disorder [Recovering/Resolving]
